FAERS Safety Report 9381895 (Version 1)
Quarter: 2013Q3

REPORT INFORMATION
  Report Type: Spontaneous
  Country: US (occurrence: US)
  Receive Date: 20130703
  Receipt Date: 20130703
  Transmission Date: 20140515
  Serious: Yes (Other)
  Sender: FDA-Public Use
  Company Number: PHHY2013US066352

PATIENT
  Age: 69 Year
  Sex: Female

DRUGS (2)
  1. ROPINIROLE [Suspect]
     Indication: RESTLESS LEGS SYNDROME
     Dosage: 0.5 MG, QHS
  2. CLONAZEPAM [Concomitant]
     Indication: PERIODIC LIMB MOVEMENT DISORDER

REACTIONS (24)
  - Incorrect dose administered [Unknown]
  - Stereotypy [Recovered/Resolved]
  - Anxiety [Recovered/Resolved]
  - Agitation [Recovered/Resolved]
  - Irritability [Recovered/Resolved]
  - Dysphoria [Recovered/Resolved]
  - Crying [Recovered/Resolved]
  - Hyperhidrosis [Recovered/Resolved]
  - Drug tolerance [Unknown]
  - Periodic limb movement disorder [Recovered/Resolved]
  - Dopamine dysregulation syndrome [Recovered/Resolved]
  - Impulse-control disorder [Recovered/Resolved]
  - Food craving [Recovered/Resolved]
  - Weight increased [Recovered/Resolved]
  - Compulsive shopping [Recovered/Resolved]
  - Restless legs syndrome [Recovered/Resolved]
  - Middle insomnia [Recovered/Resolved]
  - Insomnia [Recovered/Resolved]
  - Fatigue [Recovered/Resolved]
  - Discomfort [Recovered/Resolved]
  - Rebound effect [Unknown]
  - Drug withdrawal syndrome [Unknown]
  - Tremor [Recovered/Resolved]
  - Drug ineffective [Unknown]
